FAERS Safety Report 17475434 (Version 1)
Quarter: 2020Q1

REPORT INFORMATION
  Report Type: Report from Study
  Country: ES (occurrence: ES)
  Receive Date: 20200228
  Receipt Date: 20200228
  Transmission Date: 20200409
  Serious: Yes (Other)
  Sender: FDA-Public Use
  Company Number: ES-JNJFOC-20190736314

PATIENT

DRUGS (2)
  1. METHOTREXATE. [Concomitant]
     Active Substance: METHOTREXATE
  2. STELARA [Suspect]
     Active Substance: USTEKINUMAB
     Indication: PSORIATIC ARTHROPATHY
     Dosage: 55.6% (FIVE) PATIENTS INITIATED UTK AT A DOSE OF 45 MG, ONLY 22.2% (TWO) CURRENTLY MAINTAIN THIS DOS
     Route: 058
     Dates: start: 2018

REACTIONS (1)
  - Respiratory tract infection [Unknown]
